FAERS Safety Report 7231395-1 (Version None)
Quarter: 2011Q1

REPORT INFORMATION
  Report Type: 
  Country: None (occurrence: None)
  Receive Date: 20110118
  Receipt Date: 20110107
  Transmission Date: 20110831
  Serious: Yes (Death)
  Sender: FDA-Public Use
  Company Number: US-MERCK-1101USA00933

PATIENT
  Age: 76 Year
  Sex: Female

DRUGS (3)
  1. TIAMATE [Suspect]
     Route: 048
  2. METOPROLOL [Suspect]
     Route: 065
  3. [THERAPY UNSPECIFIED] [Suspect]
     Route: 065

REACTIONS (1)
  - ADVERSE EVENT [None]
